FAERS Safety Report 10409227 (Version 1)
Quarter: 2014Q2

REPORT INFORMATION
  Report Type: Spontaneous
  Country: US (occurrence: None)
  Receive Date: 20140604
  Receipt Date: 20140604
  Transmission Date: 20141212
  Serious: Yes (Other)
  Sender: FDA-Public Use
  Company Number: 163-POMAL14032525

PATIENT
  Age: 70 Year
  Sex: Female
  Weight: 70.3 kg

DRUGS (5)
  1. POMALYST (POMALIDOMIDE) (4 MILLIGRAM, CAPSULES) [Suspect]
     Indication: PLASMA CELL MYELOMA
     Dosage: 21 IN 21 D
     Route: 048
     Dates: start: 201307
  2. DEXAMETHASONE [Concomitant]
  3. ASPIRIN (ACETYLSALICYLIC) [Concomitant]
  4. SENNA-S (COLOXYL WITH SENNA) [Concomitant]
  5. ZOLINZA (VORINOSTAT) [Concomitant]

REACTIONS (2)
  - Drug dose omission [None]
  - No adverse event [None]
